FAERS Safety Report 8881691 (Version 2)
Quarter: 2013Q1

REPORT INFORMATION
  Report Type: Spontaneous
  Country: JP (occurrence: JP)
  Receive Date: 20121105
  Receipt Date: 20130124
  Transmission Date: 20140127
  Serious: Yes (Death, Life-Threatening)
  Sender: FDA-Public Use
  Company Number: JP-JNJFOC-20121016382

PATIENT
  Age: 73 Year
  Sex: Male
  Weight: 50 kg

DRUGS (15)
  1. RISPERDAL CONSTA [Suspect]
     Indication: SCHIZOPHRENIA
     Route: 030
     Dates: start: 20120807, end: 20120807
  2. RISPERDAL CONSTA [Suspect]
     Indication: SCHIZOPHRENIA
     Route: 030
     Dates: start: 20120821, end: 20120821
  3. RISPERDAL CONSTA [Suspect]
     Indication: SCHIZOPHRENIA
     Route: 030
     Dates: start: 20120904, end: 20120904
  4. RISPERDAL CONSTA [Suspect]
     Indication: SCHIZOPHRENIA
     Route: 030
     Dates: start: 20120626, end: 20120626
  5. RISPERDAL CONSTA [Suspect]
     Indication: SCHIZOPHRENIA
     Route: 030
     Dates: start: 20121002, end: 20121002
  6. RISPERDAL CONSTA [Suspect]
     Indication: SCHIZOPHRENIA
     Route: 030
     Dates: start: 20120725, end: 20120725
  7. RISPERDAL CONSTA [Suspect]
     Indication: SCHIZOPHRENIA
     Route: 030
     Dates: start: 20120710, end: 20120710
  8. RISPERDAL CONSTA [Suspect]
     Indication: SCHIZOPHRENIA
     Route: 030
     Dates: start: 20120918, end: 20120918
  9. RISPERDAL CONSTA [Suspect]
     Indication: SCHIZOPHRENIA
     Route: 030
     Dates: end: 20121020
  10. BIPERIDEN [Suspect]
     Indication: SCHIZOPHRENIA
     Route: 048
     Dates: start: 20120602, end: 20121020
  11. AMOBAN [Concomitant]
     Indication: INSOMNIA
     Route: 048
     Dates: start: 20120602, end: 20121020
  12. MAGMITT [Concomitant]
     Indication: PRODUCT USED FOR UNKNOWN INDICATION
     Route: 048
  13. PURSENNID [Concomitant]
     Indication: CONSTIPATION
     Route: 048
     Dates: start: 20120915, end: 20121020
  14. BLOPRESS [Concomitant]
     Indication: HYPERTENSION
     Route: 048
  15. AMLODIPINE [Concomitant]
     Indication: HYPERTENSION
     Route: 048
     Dates: start: 20120602, end: 20121020

REACTIONS (3)
  - Ileus [Fatal]
  - Cardiac arrest [Unknown]
  - Blood pressure decreased [Unknown]
